FAERS Safety Report 7302004-8 (Version None)
Quarter: 2011Q1

REPORT INFORMATION
  Report Type: 
  Country: None (occurrence: None)
  Receive Date: 20110218
  Receipt Date: 20110209
  Transmission Date: 20110831
  Serious: Yes (Hospitalization, Other)
  Sender: FDA-Public Use
  Company Number: JP-SANOFI-AVENTIS-F01200801255

PATIENT
  Age: 38 Year
  Sex: Male

DRUGS (21)
  1. OXALIPLATIN [Suspect]
     Route: 041
     Dates: start: 20071115, end: 20071115
  2. FLUOROURACIL [Suspect]
     Route: 042
  3. AVASTIN [Suspect]
     Indication: COLON CANCER METASTATIC
     Dosage: UNIT DOSE: 5 MG/KG
     Route: 041
     Dates: start: 20070817, end: 20070817
  4. MAGNESIUM OXIDE [Concomitant]
     Dates: start: 20070101
  5. KYTRIL [Concomitant]
     Dates: start: 20070719, end: 20071004
  6. FLUOROURACIL [Suspect]
     Indication: COLON CANCER METASTATIC
     Route: 042
     Dates: start: 20070817, end: 20070817
  7. FLUOROURACIL [Suspect]
     Route: 042
     Dates: start: 20090122, end: 20090122
  8. IRINOTECAN [Suspect]
     Route: 041
     Dates: start: 20090122, end: 20090122
  9. AVASTIN [Suspect]
     Route: 041
     Dates: start: 20090122, end: 20090122
  10. ISOVORIN ^CYANAMID^ [Suspect]
     Route: 041
     Dates: start: 20090122, end: 20090122
  11. AVASTIN [Suspect]
     Route: 041
  12. ISOVORIN ^CYANAMID^ [Suspect]
     Route: 041
  13. IRINOTECAN [Suspect]
     Indication: COLON CANCER METASTATIC
     Dosage: UNIT DOSE: 180 MG/M2
     Route: 041
     Dates: start: 20071129, end: 20071129
  14. MYSLEE [Concomitant]
     Dates: start: 20070718
  15. DOMPERIDONE [Concomitant]
     Dates: start: 20070719, end: 20071004
  16. LOXONIN [Concomitant]
  17. DEXAMETHASONE SODIUM PHOSPHATE [Concomitant]
     Dates: start: 20070719, end: 20071004
  18. ZOFRAN [Concomitant]
     Dates: start: 20070720, end: 20071004
  19. OXALIPLATIN [Suspect]
     Indication: COLON CANCER METASTATIC
     Dosage: UNIT DOSE: 85 MG/M2
     Route: 041
     Dates: start: 20070817, end: 20070817
  20. ISOVORIN ^CYANAMID^ [Suspect]
     Indication: COLON CANCER METASTATIC
     Route: 041
     Dates: start: 20070817, end: 20070817
  21. GASTER OD [Concomitant]
     Dates: start: 20070702

REACTIONS (3)
  - LARGE INTESTINE PERFORATION [None]
  - OESOPHAGEAL VARICES HAEMORRHAGE [None]
  - INTESTINAL OBSTRUCTION [None]
